FAERS Safety Report 21017117 (Version 1)
Quarter: 2022Q2

REPORT INFORMATION
  Report Type: Spontaneous
  Country: JP (occurrence: JP)
  Receive Date: 20220628
  Receipt Date: 20220628
  Transmission Date: 20220721
  Serious: Yes (Other)
  Sender: FDA-Public Use
  Company Number: JP-PFIZER INC-PV202200006948

PATIENT
  Age: 96 Year
  Sex: Female

DRUGS (1)
  1. MEROPENEM [Suspect]
     Active Substance: MEROPENEM
     Dosage: 1.5 G
     Route: 041

REACTIONS (5)
  - Colon cancer metastatic [Unknown]
  - Hepatic cancer metastatic [Unknown]
  - Pyrexia [Unknown]
  - Tumour marker increased [Unknown]
  - White blood cell count increased [Unknown]
